FAERS Safety Report 7087597-0 (Version None)
Quarter: 2010Q4

REPORT INFORMATION
  Report Type: 
  Country: None (occurrence: None)
  Receive Date: 20101108
  Receipt Date: 20101102
  Transmission Date: 20110411
  Serious: No
  Sender: FDA-Public Use
  Company Number: US-BIOGENIDEC-2010BI038294

PATIENT
  Age: 40 Year
  Sex: Female

DRUGS (1)
  1. TYSABRI [Suspect]
     Indication: MULTIPLE SCLEROSIS
     Route: 042
     Dates: start: 20090801

REACTIONS (5)
  - ABDOMINAL DISCOMFORT [None]
  - HEADACHE [None]
  - INCORRECT DRUG ADMINISTRATION RATE [None]
  - NAUSEA [None]
  - PAIN IN EXTREMITY [None]
